FAERS Safety Report 17529416 (Version 2)
Quarter: 2024Q2

REPORT INFORMATION
  Report Type: Spontaneous
  Country: US (occurrence: None)
  Receive Date: 20200312
  Receipt Date: 20240608
  Transmission Date: 20240715
  Serious: Yes (Death, Other)
  Sender: FDA-Public Use
  Company Number: US-ROCHE-2557275

PATIENT
  Age: 8 Year
  Sex: Female

DRUGS (2)
  1. TAMIFLU [Suspect]
     Active Substance: OSELTAMIVIR PHOSPHATE
     Indication: Influenza
     Route: 065
  2. IBUPROFEN [Concomitant]
     Active Substance: IBUPROFEN

REACTIONS (7)
  - Haematological infection [Fatal]
  - Dyspnoea [Unknown]
  - Chest pain [Unknown]
  - Lung disorder [Unknown]
  - Headache [Unknown]
  - Pyrexia [Unknown]
  - Immunodeficiency [Unknown]
